FAERS Safety Report 16884450 (Version 1)
Quarter: 2019Q4

REPORT INFORMATION
  Report Type: Spontaneous
  Country: US (occurrence: US)
  Receive Date: 20190808
  Receipt Date: 20190808
  Transmission Date: 20200122
  Serious: Yes (Other)
  Sender: FDA-Public Use
  Company Number: None

PATIENT
  Age: 35 Year
  Sex: Female

DRUGS (1)
  1. CREST 3D WHITE WHITESTRIPS DENTAL WHITENING KIT, VERSION UNKNOWN [Suspect]
     Active Substance: HYDROGEN PEROXIDE
     Route: 004
     Dates: start: 201812, end: 201902

REACTIONS (4)
  - Tooth loss [None]
  - Drug intolerance [None]
  - Tooth discolouration [None]
  - Tooth injury [None]
